FAERS Safety Report 13700954 (Version 1)
Quarter: 2017Q2

REPORT INFORMATION
  Report Type: Spontaneous
  Country: US (occurrence: US)
  Receive Date: 20170628
  Receipt Date: 20170628
  Transmission Date: 20170830
  Serious: Yes (Other)
  Sender: FDA-Public Use
  Company Number: None

PATIENT
  Age: 34 Year
  Sex: Female
  Weight: 63 kg

DRUGS (2)
  1. DEPO-PROVERA [Suspect]
     Active Substance: MEDROXYPROGESTERONE ACETATE
     Indication: CONTRACEPTION
     Route: 030
  2. BIOTIN [Concomitant]
     Active Substance: BIOTIN

REACTIONS (3)
  - Alopecia [None]
  - Depression [None]
  - Headache [None]

NARRATIVE: CASE EVENT DATE: 20170217
